FAERS Safety Report 20854539 (Version 1)
Quarter: 2022Q2

REPORT INFORMATION
  Report Type: Spontaneous
  Country: US (occurrence: US)
  Receive Date: 20220520
  Receipt Date: 20220520
  Transmission Date: 20220721
  Serious: No
  Sender: FDA-Public Use
  Company Number: US-BRISTOL-MYERS SQUIBB COMPANY-2022-036082

PATIENT
  Age: 68 Year
  Sex: Female
  Weight: 64.2 kg

DRUGS (2)
  1. REVLIMID [Suspect]
     Active Substance: LENALIDOMIDE
     Indication: Plasma cell myeloma
     Dosage: FREQUENCY ^ 21 DAY ON AND 28 DAY OFF CYCLE
     Route: 048
  2. NINLARO [Suspect]
     Active Substance: IXAZOMIB CITRATE
     Indication: Product used for unknown indication

REACTIONS (4)
  - Muscle spasms [Unknown]
  - Dry skin [Unknown]
  - Eye pruritus [Unknown]
  - Muscle spasms [Unknown]
